FAERS Safety Report 7849949-8 (Version None)
Quarter: 2011Q4

REPORT INFORMATION
  Report Type: 
  Country: None (occurrence: None)
  Receive Date: 20111025
  Receipt Date: 20111025
  Transmission Date: 20120403
  Serious: Yes (Life-Threatening, Hospitalization)
  Sender: FDA-Public Use
  Company Number: None

PATIENT
  Age: 59 Year
  Sex: Male
  Weight: 115.3 kg

DRUGS (1)
  1. VANCOMYCIN HCL [Suspect]
     Indication: SURGERY
     Dosage: 1000 MG ONCE IV
     Route: 042
     Dates: start: 20110902, end: 20110902

REACTIONS (6)
  - DOCUMENTED HYPERSENSITIVITY TO ADMINISTERED DRUG [None]
  - PRURITUS [None]
  - VOMITING [None]
  - HYPOTENSION [None]
  - NAUSEA [None]
  - RASH [None]
